FAERS Safety Report 8233870-X (Version None)
Quarter: 2012Q1

REPORT INFORMATION
  Report Type: 
  Country: None (occurrence: None)
  Receive Date: 20120326
  Receipt Date: 20120316
  Transmission Date: 20120608
  Serious: Yes (Other)
  Sender: FDA-Public Use
  Company Number: GB-SANOFI-AVENTIS-2012SA018662

PATIENT
  Age: 47 Year
  Sex: Male
  Weight: 119 kg

DRUGS (6)
  1. SIMVASTATIN [Concomitant]
     Dates: start: 20111223, end: 20120120
  2. ALBUTEROL [Concomitant]
     Dates: start: 20120112, end: 20120209
  3. TRAMADOL HCL [Concomitant]
     Dates: start: 20120309
  4. ATENOLOL AND CHLORTHALIDONE [Suspect]
     Route: 065
     Dates: start: 20111223
  5. OMEPRAZOLE [Concomitant]
     Dates: start: 20120126, end: 20120223
  6. ATENOLOL AND CHLORTHALIDONE [Suspect]
     Route: 065
     Dates: start: 20120309

REACTIONS (4)
  - WHEEZING [None]
  - DYSPEPSIA [None]
  - COUGH [None]
  - DYSPNOEA [None]
